FAERS Safety Report 9910303 (Version 1)
Quarter: 2014Q1

REPORT INFORMATION
  Report Type: Spontaneous
  Country: US (occurrence: US)
  Receive Date: 20140219
  Receipt Date: 20140219
  Transmission Date: 20141002
  Serious: Yes (Hospitalization, Other)
  Sender: FDA-Public Use
  Company Number: US-INCYTE CORPORATION-2014IN000354

PATIENT
  Age: 70 Year
  Sex: Male

DRUGS (13)
  1. JAKAFI [Suspect]
     Indication: MYELOFIBROSIS
     Dosage: 15 MG, BID
     Route: 048
     Dates: start: 201310, end: 201401
  2. KEFLEX                             /00145501/ [Concomitant]
  3. CITALOPRAM [Concomitant]
  4. SENOKOT-S [Concomitant]
  5. DOXAZOSIN [Concomitant]
  6. LOVENOX [Concomitant]
  7. FUROSEMIDE [Concomitant]
  8. SYNTHROID [Concomitant]
  9. OXYCODONE [Concomitant]
  10. AFRIN SPRAY [Concomitant]
  11. PROTONIX [Concomitant]
  12. MIRALAX                            /00754501/ [Concomitant]
  13. SODIUM CHLORIDE NASAL SPRAY [Concomitant]

REACTIONS (3)
  - Epistaxis [Unknown]
  - Thrombosis [Unknown]
  - Transfusion [Unknown]
